FAERS Safety Report 9253868 (Version 2)
Quarter: 2013Q2

REPORT INFORMATION
  Report Type: Spontaneous
  Country: FR (occurrence: FR)
  Receive Date: 20130425
  Receipt Date: 20130607
  Transmission Date: 20140414
  Serious: Yes (Other)
  Sender: FDA-Public Use
  Company Number: FR-009507513-1304FRA010597

PATIENT
  Age: 52 Year
  Sex: Female
  Weight: 65 kg

DRUGS (4)
  1. VICTRELIS [Suspect]
     Indication: HEPATITIS C
     Dosage: 4 DF, TID
     Route: 048
     Dates: start: 20121008, end: 20130510
  2. REBETOL [Suspect]
     Indication: HEPATITIS C
     Dosage: 800 MG, QD
     Route: 048
     Dates: start: 20120910, end: 201304
  3. REBETOL [Suspect]
     Dosage: 600 MG, QD
     Dates: start: 201304
  4. VIRAFERONPEG [Suspect]
     Indication: HEPATITIS C
     Dosage: 80 MICROGRAM, QW
     Route: 058
     Dates: start: 20120910

REACTIONS (8)
  - Hypothyroidism [Recovering/Resolving]
  - Dyspnoea [Recovering/Resolving]
  - Pain of skin [Unknown]
  - Acne [Unknown]
  - Psoriasis [Unknown]
  - Alopecia [Unknown]
  - Paraesthesia [Unknown]
  - Anaemia [Unknown]
